FAERS Safety Report 5207204-9 (Version None)
Quarter: 2007Q1

REPORT INFORMATION
  Report Type: 
  Country: None (occurrence: None)
  Receive Date: 20070112
  Receipt Date: 20070111
  Transmission Date: 20070707
  Serious: Yes (Death, Hospitalization)
  Sender: FDA-Public Use
  Company Number: FR-GLAXOSMITHKLINE-B0452773A

PATIENT
  Age: 62 Year
  Sex: Female
  Weight: 71 kg

DRUGS (11)
  1. PAROXETINE HCL [Suspect]
     Indication: DRUG USE FOR UNKNOWN INDICATION
     Dosage: 20MG PER DAY
     Route: 048
     Dates: start: 20060513, end: 20060515
  2. IVEEGAM [Suspect]
     Dosage: 20G PER DAY
     Route: 042
     Dates: start: 20060512, end: 20060515
  3. PROGRAF [Suspect]
     Dosage: .5MG PER DAY
     Route: 048
     Dates: end: 20060516
  4. ALBUMIN (HUMAN) [Suspect]
     Dosage: 20G PER DAY
     Route: 042
     Dates: start: 20060513, end: 20060516
  5. INIPOMP [Concomitant]
  6. CALCIPARINE [Concomitant]
  7. NORADRENALINE [Concomitant]
  8. ACUPAN [Concomitant]
  9. TIENAM [Concomitant]
  10. PERFALGAN [Concomitant]
  11. SOLU-MEDROL [Concomitant]

REACTIONS (8)
  - CACHEXIA [None]
  - COMA [None]
  - CONVULSION [None]
  - DRUG TOXICITY [None]
  - ELECTROENCEPHALOGRAM ABNORMAL [None]
  - MULTI-ORGAN FAILURE [None]
  - OVERDOSE [None]
  - RENAL FAILURE [None]
